FAERS Safety Report 20941888 (Version 2)
Quarter: 2022Q2

REPORT INFORMATION
  Report Type: Spontaneous
  Country: JP (occurrence: JP)
  Receive Date: 20220610
  Receipt Date: 20220623
  Transmission Date: 20220720
  Serious: Yes (Hospitalization, Other)
  Sender: FDA-Public Use
  Company Number: JP-MTPC-MTPC2022-0014692

PATIENT
  Age: 8 Decade
  Sex: Female

DRUGS (2)
  1. EDARAVONE [Suspect]
     Active Substance: EDARAVONE
     Indication: Amyotrophic lateral sclerosis
     Dosage: 60 MILLIGRAM, QD
     Route: 041
  2. RILUZOLE [Concomitant]
     Active Substance: RILUZOLE
     Route: 065

REACTIONS (3)
  - Gastrostomy [Unknown]
  - Muscular weakness [Unknown]
  - Mechanical ventilation [Unknown]
